FAERS Safety Report 23688948 (Version 2)
Quarter: 2024Q2

REPORT INFORMATION
  Report Type: Spontaneous
  Country: CN (occurrence: CN)
  Receive Date: 20240329
  Receipt Date: 20240405
  Transmission Date: 20240715
  Serious: No
  Sender: FDA-Public Use
  Company Number: CN-DSJP-DSJ-2024-113706

PATIENT
  Age: 45 Year
  Sex: Female
  Weight: 85 kg

DRUGS (2)
  1. TRASTUZUMAB DERUXTECAN [Suspect]
     Active Substance: TRASTUZUMAB DERUXTECAN
     Indication: Breast cancer
     Dosage: UNK, ONCE EVERY 3 WK (INJECTED 6 PHASES)
     Route: 065
     Dates: start: 20231113
  2. TRASTUZUMAB DERUXTECAN [Suspect]
     Active Substance: TRASTUZUMAB DERUXTECAN
     Indication: Wound decomposition

REACTIONS (12)
  - Palpitations [Unknown]
  - Agitation [Unknown]
  - Constipation [Unknown]
  - Decreased appetite [Unknown]
  - Disturbance in attention [Unknown]
  - Retching [Unknown]
  - Nausea [Unknown]
  - Discomfort [Recovering/Resolving]
  - Coma [Unknown]
  - Vomiting [Unknown]
  - Mental disorder [Unknown]
  - Feeding disorder [Unknown]

NARRATIVE: CASE EVENT DATE: 20240227
